FAERS Safety Report 6338980-X (Version None)
Quarter: 2009Q3

REPORT INFORMATION
  Report Type: 
  Country: None (occurrence: None)
  Receive Date: 20090903
  Receipt Date: 20090825
  Transmission Date: 20100115
  Serious: Yes (Hospitalization)
  Sender: FDA-Public Use
  Company Number: BR-BAYER-200930074GPV

PATIENT
  Age: 38 Year
  Sex: Male

DRUGS (6)
  1. PRAZIQUANTEL [Suspect]
     Indication: SCHISTOSOMIASIS
  2. PRAZIQUANTEL [Suspect]
  3. DEXAMETHASONE [Concomitant]
     Indication: SCHISTOSOMIASIS
     Route: 048
  4. HYDANTOIN [Concomitant]
     Indication: CONVULSION
  5. STEROIDS [Concomitant]
     Indication: SCHISTOSOMIASIS
  6. PREDNISONE [Concomitant]
     Indication: SCHISTOSOMIASIS
     Dosage: TOTAL DAILY DOSE: 80 MG  UNIT DOSE: 80 MG

REACTIONS (8)
  - FAECAL INCONTINENCE [None]
  - MUSCULAR WEAKNESS [None]
  - PARALYSIS FLACCID [None]
  - PARAPLEGIA [None]
  - SENSORY LOSS [None]
  - SPINAL MUSCULAR ATROPHY [None]
  - URINARY RETENTION [None]
  - VASCULITIS CEREBRAL [None]
